FAERS Safety Report 5219193-1 (Version None)
Quarter: 2007Q1

REPORT INFORMATION
  Report Type: 
  Country: None (occurrence: None)
  Receive Date: 20070125
  Receipt Date: 20070116
  Transmission Date: 20070707
  Serious: Yes (Disabling, Other)
  Sender: FDA-Public Use
  Company Number: 2006UW15000

PATIENT
  Sex: Male

DRUGS (4)
  1. SEROQUEL [Suspect]
     Indication: DEPRESSION
     Route: 048
     Dates: end: 20040101
  2. SEROQUEL [Suspect]
     Indication: BIPOLAR II DISORDER
     Route: 048
     Dates: end: 20040101
  3. SEROQUEL [Suspect]
     Route: 048
     Dates: start: 20060101, end: 20060301
  4. SEROQUEL [Suspect]
     Route: 048
     Dates: start: 20060101, end: 20060301

REACTIONS (10)
  - ABNORMAL BEHAVIOUR [None]
  - ACTIVITIES OF DAILY LIVING IMPAIRED [None]
  - AGORAPHOBIA [None]
  - BALANCE DISORDER [None]
  - CATARACT [None]
  - EARLY RETIREMENT [None]
  - MANIA [None]
  - PERIORBITAL HAEMATOMA [None]
  - SUICIDAL IDEATION [None]
  - VERTIGO [None]
